FAERS Safety Report 8592187-4 (Version None)
Quarter: 2012Q3

REPORT INFORMATION
  Report Type: 
  Country: None (occurrence: None)
  Receive Date: 20120814
  Receipt Date: 20120803
  Transmission Date: 20120928
  Serious: Yes (Other)
  Sender: FDA-Public Use
  Company Number: NL-AMGEN-NLDSP2011063311

PATIENT
  Age: 50 Year
  Sex: Female

DRUGS (1)
  1. ENBREL [Suspect]
     Indication: PRODUCT USED FOR UNKNOWN INDICATION
     Dosage: 50 MG, 2X/WEEK
     Dates: start: 20111115, end: 20110101

REACTIONS (5)
  - OFF LABEL USE [None]
  - DERMATITIS [None]
  - PNEUMONIA [None]
  - INFLAMMATION [None]
  - CHEST DISCOMFORT [None]
